FAERS Safety Report 11315393 (Version 2)
Quarter: 2015Q3

REPORT INFORMATION
  Report Type: Report from Study
  Country: US (occurrence: US)
  Receive Date: 20150728
  Receipt Date: 20150810
  Transmission Date: 20151125
  Serious: Yes (Other)
  Sender: FDA-Public Use
  Company Number: PHEH2015US013609

PATIENT
  Sex: Male
  Weight: 60.23 kg

DRUGS (6)
  1. GILENYA [Suspect]
     Active Substance: FINGOLIMOD HYDROCHLORIDE
     Dosage: 0.5 MG, QD
     Route: 048
     Dates: start: 20150316
  2. PRENAT PLUS [Concomitant]
     Indication: PRODUCT USED FOR UNKNOWN INDICATION
     Dosage: 1 OT, QD
     Route: 048
     Dates: start: 20130624, end: 20141201
  3. SILDENAFIL CITRATE. [Concomitant]
     Active Substance: SILDENAFIL CITRATE
     Indication: PRODUCT USED FOR UNKNOWN INDICATION
     Dosage: TAKE 1 TABLET BY MOUTH 30 MIN TI 1 HRS BEFORE SEXUAL ACTIVITY. DONOT EXCEED 75 MG/DAY
     Route: 048
     Dates: start: 20120905, end: 20141201
  4. GILENYA [Suspect]
     Active Substance: FINGOLIMOD HYDROCHLORIDE
     Indication: MULTIPLE SCLEROSIS
     Dosage: UNK
     Route: 065
     Dates: start: 201206
  5. NUVIGIL [Concomitant]
     Active Substance: ARMODAFINIL
     Indication: PRODUCT USED FOR UNKNOWN INDICATION
     Dosage: 1-2 TABLETS, PRN
     Route: 048
     Dates: start: 20130827, end: 20141201
  6. GILENYA [Suspect]
     Active Substance: FINGOLIMOD HYDROCHLORIDE
     Dosage: 1 DF, QD
     Route: 048
     Dates: start: 20140114, end: 20140513

REACTIONS (7)
  - Multiple sclerosis [Unknown]
  - Heterophoria [Unknown]
  - Optic neuritis [Unknown]
  - Vision blurred [Unknown]
  - Ophthalmoplegia [Unknown]
  - Diplopia [Unknown]
  - Central nervous system lesion [Unknown]
